FAERS Safety Report 23532971 (Version 1)
Quarter: 2024Q1

REPORT INFORMATION
  Report Type: Spontaneous
  Country: GT (occurrence: GT)
  Receive Date: 20240216
  Receipt Date: 20240216
  Transmission Date: 20240409
  Serious: Yes (Other)
  Sender: FDA-Public Use
  Company Number: GT-002147023-NVSC2024GT032426

PATIENT
  Age: 33 Year
  Sex: Female

DRUGS (1)
  1. SECUKINUMAB [Suspect]
     Active Substance: SECUKINUMAB
     Indication: Ankylosing spondylitis
     Dosage: 150 MG
     Route: 065

REACTIONS (5)
  - Lymphoproliferative disorder [Unknown]
  - Immunodeficiency [Unknown]
  - Sinusitis [Unknown]
  - Infection [Unknown]
  - Pain [Recovering/Resolving]
